FAERS Safety Report 5460988-7 (Version None)
Quarter: 2007Q3

REPORT INFORMATION
  Report Type: 
  Country: None (occurrence: None)
  Receive Date: 20070822
  Receipt Date: 20070411
  Transmission Date: 20080115
  Serious: Yes (Other)
  Sender: FDA-Public Use
  Company Number: 2007029229

PATIENT
  Age: 60 Year
  Sex: Female
  Weight: 74.8 kg

DRUGS (2)
  1. NORVASC [Suspect]
     Indication: BLOOD PRESSURE
     Dosage: 5 MG (5 MG, 1 IN 24 HR)
     Dates: start: 20070201, end: 20070411
  2. PRILOSEC [Concomitant]

REACTIONS (2)
  - LIP SWELLING [None]
  - URTICARIA [None]
